FAERS Safety Report 20031722 (Version 1)
Quarter: 2021Q4

REPORT INFORMATION
  Report Type: Report from Study
  Country: HU (occurrence: HU)
  Receive Date: 20211103
  Receipt Date: 20211103
  Transmission Date: 20220303
  Serious: Yes (Hospitalization)
  Sender: FDA-Public Use
  Company Number: HU-ABBVIE-21K-076-4142845-00

PATIENT
  Sex: Female

DRUGS (9)
  1. CARBIDOPA\LEVODOPA [Suspect]
     Active Substance: CARBIDOPA\LEVODOPA
     Indication: Parkinson^s disease
     Dosage: MORNING DOSE: 7.0 ML; CONTINUOUS DOSE: 3.9 ML/HOUR; EXTRA DOSE: 1.3 ML
     Route: 050
     Dates: start: 20180919
  2. CARBIDOPA\LEVODOPA [Suspect]
     Active Substance: CARBIDOPA\LEVODOPA
  3. CITROKALCIUM [Concomitant]
     Indication: Osteoporosis
     Route: 048
  4. BENSERAZIDE HYDROCHLORIDE\LEVODOPA [Concomitant]
     Active Substance: BENSERAZIDE HYDROCHLORIDE\LEVODOPA
     Indication: Parkinson^s disease
     Dosage: 200 MG LEVODOPA, 50 MG BESERAZIDE / TABLET AT 1 A.M.
     Route: 048
     Dates: end: 20211027
  5. BENSERAZIDE HYDROCHLORIDE\LEVODOPA [Concomitant]
     Active Substance: BENSERAZIDE HYDROCHLORIDE\LEVODOPA
     Indication: Parkinson^s disease
     Dosage: 200 MG LEVODOPA, 50 MG BESERAZIDE / TABLET AT 4 A.M.
     Route: 048
  6. BENSERAZIDE HYDROCHLORIDE\LEVODOPA [Concomitant]
     Active Substance: BENSERAZIDE HYDROCHLORIDE\LEVODOPA
     Indication: Parkinson^s disease
     Dosage: 100 MG LEVODOPA, 25 MG BESERAZIDE / TABLET AT 1 A.M.
     Route: 048
     Dates: start: 20211027
  7. TREXAN [Concomitant]
     Indication: Product used for unknown indication
     Dosage: 20 MG AT EVERY SATURDAY MORNING
     Route: 048
  8. FERROUS SULFATE [Concomitant]
     Active Substance: FERROUS SULFATE
     Indication: Product used for unknown indication
     Dosage: 2 TABLETS AT SUNDAY MORNING
     Route: 048
  9. VITAMIN B12 [Concomitant]
     Active Substance: CYANOCOBALAMIN
     Indication: Product used for unknown indication
     Route: 030

REACTIONS (2)
  - Weight decreased [Not Recovered/Not Resolved]
  - Fall [Recovering/Resolving]

NARRATIVE: CASE EVENT DATE: 20210701
